FAERS Safety Report 7677351-0 (Version None)
Quarter: 2011Q3

REPORT INFORMATION
  Report Type: 
  Country: None (occurrence: None)
  Receive Date: 20110811
  Receipt Date: 20110729
  Transmission Date: 20111222
  Serious: Yes (Other)
  Sender: FDA-Public Use
  Company Number: CA-ELI_LILLY_AND_COMPANY-CA201107008013

PATIENT
  Weight: 145 kg

DRUGS (6)
  1. ZYPREXA ZYDIS [Suspect]
     Indication: SCHIZOPHRENIA, PARANOID TYPE
     Dosage: 10 MG, BID
  2. ZYPREXA [Suspect]
     Dosage: 30 MG, QD
  3. QUETIAPINE [Concomitant]
  4. ZYPREXA [Suspect]
     Indication: SCHIZOPHRENIA, PARANOID TYPE
     Dosage: 10 MG, BID
  5. ZYPREXA ZYDIS [Suspect]
     Dosage: 30 MG, QD
  6. ZYPREXA [Suspect]
     Dosage: 25 MG, EACH EVENING

REACTIONS (7)
  - HYPERGLYCAEMIA [None]
  - LIPIDS INCREASED [None]
  - LATENT TUBERCULOSIS [None]
  - WEIGHT INCREASED [None]
  - OVERDOSE [None]
  - PLATELET COUNT DECREASED [None]
  - HYPERTENSION [None]
